FAERS Safety Report 8807796 (Version 3)
Quarter: 2012Q4

REPORT INFORMATION
  Report Type: Report from Study
  Country: US (occurrence: US)
  Receive Date: 20120925
  Receipt Date: 20121114
  Transmission Date: 20130627
  Serious: Yes (Hospitalization)
  Sender: FDA-Public Use
  Company Number: US-ROCHE-1125554

PATIENT
  Age: 53 Year
  Sex: Female
  Weight: 64.65 kg

DRUGS (1)
  1. CAPECITABINE [Suspect]
     Indication: BREAST CANCER
     Route: 048
     Dates: start: 20120308, end: 20120409

REACTIONS (7)
  - Personality disorder [Unknown]
  - Heart rate decreased [Unknown]
  - Visual impairment [Unknown]
  - Deafness transitory [Unknown]
  - Visual impairment [Unknown]
  - Vomiting [Unknown]
  - Sensory loss [Unknown]
